FAERS Safety Report 15392328 (Version 2)
Quarter: 2018Q4

REPORT INFORMATION
  Report Type: Spontaneous
  Country: US (occurrence: US)
  Receive Date: 20180917
  Receipt Date: 20181115
  Transmission Date: 20190204
  Serious: Yes (Other)
  Sender: FDA-Public Use
  Company Number: US-SA-2018SA258379

PATIENT
  Age: 57 Year
  Sex: Male

DRUGS (2)
  1. PRALUENT [Suspect]
     Active Substance: ALIROCUMAB
     Dosage: UNK
     Route: 058
     Dates: start: 201807
  2. ALIROCUMAB PREFILLED PEN [Suspect]
     Active Substance: ALIROCUMAB
     Dosage: UNK
     Route: 058
     Dates: start: 201807

REACTIONS (8)
  - Muscle spasms [Unknown]
  - Rash [Unknown]
  - Haematochezia [Unknown]
  - Joint stiffness [Unknown]
  - Muscle tightness [Unknown]
  - Flushing [Recovered/Resolved]
  - Acne [Unknown]
  - Energy increased [Unknown]

NARRATIVE: CASE EVENT DATE: 2018
